FAERS Safety Report 7421706-6 (Version None)
Quarter: 2011Q2

REPORT INFORMATION
  Report Type: 
  Country: None (occurrence: None)
  Receive Date: 20110418
  Receipt Date: 20100304
  Transmission Date: 20111010
  Serious: Yes (Death, Hospitalization, Other)
  Sender: FDA-Public Use
  Company Number: US-BAYER-201015304NA

PATIENT
  Age: 81 Year
  Sex: Female
  Weight: 51.701 kg

DRUGS (10)
  1. TRASYLOL [Suspect]
     Indication: AORTIC VALVE REPLACEMENT
  2. MULTI-VITAMINS [Concomitant]
  3. TRASYLOL [Suspect]
     Indication: CORONARY ARTERY BYPASS
     Dosage: UNK
     Dates: start: 20041026
  4. METRONIDAZOLE [Concomitant]
     Dosage: UNK
     Dates: start: 20041001, end: 20050101
  5. ACETYLSALICYLIC ACID SRT [Concomitant]
     Dosage: UNK
     Route: 048
     Dates: start: 20041001, end: 20050101
  6. ACETAMINOPHEN [Concomitant]
     Dosage: UNK
     Route: 048
     Dates: start: 20041001, end: 20050101
  7. PREVACID [Concomitant]
     Dosage: 30 MG, UNK
     Route: 048
     Dates: start: 20040601, end: 20050101
  8. AGGRENOX [Concomitant]
     Dosage: 1 TWICE DAILY
     Route: 048
     Dates: start: 20040601, end: 20050101
  9. LORAZEPAM [Concomitant]
     Dosage: 1 MG, UNK
     Route: 048
     Dates: start: 20000101, end: 20040101
  10. CIPRO [Concomitant]
     Dosage: UNK
     Dates: start: 20040601, end: 20050101

REACTIONS (6)
  - RENAL FAILURE ACUTE [None]
  - PAIN [None]
  - DEATH [None]
  - RESPIRATORY FAILURE [None]
  - INJURY [None]
  - RENAL FAILURE [None]
